FAERS Safety Report 7412290-1 (Version None)
Quarter: 2011Q2

REPORT INFORMATION
  Report Type: 
  Country: None (occurrence: None)
  Receive Date: 20110413
  Receipt Date: 20110406
  Transmission Date: 20111010
  Serious: Yes (Other)
  Sender: FDA-Public Use
  Company Number: US-ROCHE-769855

PATIENT
  Sex: Male
  Weight: 98.4 kg

DRUGS (9)
  1. FINASTERIDE [Concomitant]
  2. TERAZOSIN [Concomitant]
  3. FOLIC ACID [Concomitant]
  4. PREDNISONE [Concomitant]
  5. ACTEMRA [Suspect]
     Dosage: TOTAL MONTHLY DOSE: MG MILLIGRAMS.
     Route: 042
     Dates: start: 20110119
  6. METHOTREXATE [Concomitant]
     Dosage: DOSE: 2.5 MG X 5.
  7. NITROFURANTOIN [Concomitant]
  8. KLONOPIN [Concomitant]
     Dosage: FREQUENCY: OD.
  9. CYMBALTA [Concomitant]

REACTIONS (5)
  - ARTHROPATHY [None]
  - ARTHRALGIA [None]
  - FALL [None]
  - OEDEMA PERIPHERAL [None]
  - URINARY TRACT INFECTION [None]
